FAERS Safety Report 15714631 (Version 2)
Quarter: 2019Q1

REPORT INFORMATION
  Report Type: Spontaneous
  Country: US (occurrence: US)
  Receive Date: 20181212
  Receipt Date: 20190108
  Transmission Date: 20190417
  Serious: Yes (Other)
  Sender: FDA-Public Use
  Company Number: US-ALKEM LABORATORIES LIMITED-US-ALKEM-2018-10703

PATIENT
  Age: 60 Year
  Sex: Male

DRUGS (2)
  1. HYDRALAZINE HYDROCHLORIDE. [Suspect]
     Active Substance: HYDRALAZINE HYDROCHLORIDE
     Dosage: 200 MG, QD
     Route: 065
  2. HYDRALAZINE HYDROCHLORIDE. [Suspect]
     Active Substance: HYDRALAZINE HYDROCHLORIDE
     Indication: HYPERTENSION
     Dosage: 50 MG, QD DIVIDED IN TWO DOSES
     Route: 065
     Dates: start: 198009

REACTIONS (3)
  - Vasculitis necrotising [Unknown]
  - Systemic lupus erythematosus [Recovered/Resolved]
  - Dysphonia [Recovered/Resolved]
